FAERS Safety Report 25322062 (Version 1)
Quarter: 2025Q2

REPORT INFORMATION
  Report Type: Report from Study
  Country: US (occurrence: US)
  Receive Date: 20250516
  Receipt Date: 20250516
  Transmission Date: 20250716
  Serious: Yes (Other)
  Sender: JAZZ
  Company Number: US-JAZZ PHARMACEUTICALS-2025-US-010317

PATIENT
  Age: 47 Year
  Sex: Female
  Weight: 68 kg

DRUGS (27)
  1. XYWAV [Suspect]
     Active Substance: CALCIUM OXYBATE\MAGNESIUM OXYBATE\POTASSIUM OXYBATE\SODIUM OXYBATE
     Indication: Hypersomnia
     Dosage: 4.5 GRAM, QD
     Route: 048
     Dates: start: 20250407
  2. XYWAV [Suspect]
     Active Substance: CALCIUM OXYBATE\MAGNESIUM OXYBATE\POTASSIUM OXYBATE\SODIUM OXYBATE
  3. XYWAV [Suspect]
     Active Substance: CALCIUM OXYBATE\MAGNESIUM OXYBATE\POTASSIUM OXYBATE\SODIUM OXYBATE
     Dosage: 6 GRAM, QD
     Dates: start: 202503, end: 20250429
  4. XYWAV [Suspect]
     Active Substance: CALCIUM OXYBATE\MAGNESIUM OXYBATE\POTASSIUM OXYBATE\SODIUM OXYBATE
     Dosage: 6 GRAM, QD
     Route: 048
     Dates: start: 20250407, end: 20250428
  5. ALBUTEROL SULFATE [Concomitant]
     Active Substance: ALBUTEROL SULFATE
     Dates: start: 20000301
  6. AMLODIPINE BESYLATE [Concomitant]
     Active Substance: AMLODIPINE BESYLATE
     Dates: start: 20240301
  7. WELLBUTRIN [Concomitant]
     Active Substance: BUPROPION HYDROCHLORIDE
     Dates: start: 20240301
  8. CETIRIZINE [Concomitant]
     Active Substance: CETIRIZINE HYDROCHLORIDE
     Dates: start: 19980101
  9. VITAMIN D3 [Concomitant]
     Active Substance: CHOLECALCIFEROL
     Dates: start: 20000301
  10. AIMOVIG [Concomitant]
     Active Substance: ERENUMAB-AOOE
     Dates: start: 20250225
  11. FAMOTIDINE [Concomitant]
     Active Substance: FAMOTIDINE
     Dates: start: 20000301
  12. FLUTICASON AUROBINDO [Concomitant]
     Dates: start: 20200301
  13. FLONASE ALLERGY RELIEF [Concomitant]
     Active Substance: FLUTICASONE PROPIONATE
     Dates: start: 19980101
  14. LEFLUNOMIDE [Concomitant]
     Active Substance: LEFLUNOMIDE
     Dates: start: 20200301
  15. MAGNESIUM GLYCINATE [Concomitant]
     Active Substance: MAGNESIUM GLYCINATE
     Dates: start: 20000301
  16. MECLIZINE HYDROCHLORIDE [Concomitant]
     Active Substance: MECLIZINE HYDROCHLORIDE
     Dates: start: 20200301
  17. COCONUT OIL [Concomitant]
     Active Substance: COCONUT OIL
     Dates: start: 20200301
  18. METHYLPREDNISOLONE [Concomitant]
     Active Substance: METHYLPREDNISOLONE
     Dates: start: 20240301
  19. MONTELUKAST SODIUM [Concomitant]
     Active Substance: MONTELUKAST SODIUM
     Dates: start: 20200301
  20. NALTREXONE HYDROCHLORIDE [Concomitant]
     Active Substance: NALTREXONE HYDROCHLORIDE
     Dates: start: 20200301
  21. NAPROXEN [Concomitant]
     Active Substance: NAPROXEN
     Dates: start: 20150301
  22. ONDANSETRON [Concomitant]
     Active Substance: ONDANSETRON
     Dates: start: 20150301
  23. RIZATRIPTAN 2CARE4 [Concomitant]
     Dates: start: 20150301
  24. THEANINE SERENE [Concomitant]
     Dates: start: 20200301
  25. TOLTERODINE TARTRA [Concomitant]
     Dates: start: 20200301
  26. VALACYCLOVIR HYDROCHLORIDE [Concomitant]
     Active Substance: VALACYCLOVIR HYDROCHLORIDE
     Dates: start: 20200301
  27. LEVOTHYROXINE [Concomitant]
     Active Substance: LEVOTHYROXINE

REACTIONS (16)
  - Respiratory arrest [Unknown]
  - Unresponsive to stimuli [Unknown]
  - Moaning [Unknown]
  - Speech disorder [Unknown]
  - Chest discomfort [Unknown]
  - Hypoaesthesia [Unknown]
  - Feeling abnormal [Unknown]
  - Abdominal pain upper [Unknown]
  - Insomnia [Unknown]
  - Dry mouth [Unknown]
  - Vomiting [Unknown]
  - Nausea [Unknown]
  - Feeling drunk [Unknown]
  - Hangover [Unknown]
  - Dizziness [Recovering/Resolving]
  - Asthenia [Recovering/Resolving]

NARRATIVE: CASE EVENT DATE: 20250428
